FAERS Safety Report 7007998-6 (Version None)
Quarter: 2010Q3

REPORT INFORMATION
  Report Type: 
  Country: None (occurrence: None)
  Receive Date: 20100922
  Receipt Date: 20100913
  Transmission Date: 20110219
  Serious: Yes (Hospitalization, Disabling, Other)
  Sender: FDA-Public Use
  Company Number: PHEH2008US08678

PATIENT
  Sex: Female

DRUGS (72)
  1. ZOMETA [Suspect]
     Indication: BONE DENSITY ABNORMAL
     Dosage: 4 MG /EVERY 3 MONTHS
     Route: 042
     Dates: start: 20040119, end: 20070701
  2. FOSAMAX [Suspect]
     Dosage: UNK
  3. LEXAPRO [Concomitant]
  4. MICARDIS [Concomitant]
  5. DITROPAN XL [Concomitant]
  6. VIVELLE-DOT [Concomitant]
     Dosage: 0.1
  7. SYNTHROID [Concomitant]
  8. PRAVACHOL [Concomitant]
  9. COMBIVENT                               /GFR/ [Concomitant]
  10. SUDAFED 12 HOUR [Concomitant]
  11. THYROID TAB [Concomitant]
     Dosage: UNK
  12. DOXEPIN HCL [Concomitant]
  13. WELLBUTRIN [Concomitant]
  14. ADVAIR DISKUS 100/50 [Concomitant]
  15. LASIX [Concomitant]
  16. AGGRENOX [Concomitant]
  17. TESSALON [Concomitant]
  18. PREMARIN [Concomitant]
  19. PLAVIX [Concomitant]
  20. FENTANYL CITRATE [Concomitant]
  21. CIPROFLOXACIN [Concomitant]
     Dosage: UNK
     Dates: end: 20090131
  22. LEVSIN [Concomitant]
  23. XANAX [Concomitant]
     Dosage: UNK
  24. ALLEGRA [Concomitant]
  25. VICODIN [Concomitant]
     Dosage: UNK
  26. ALTACE [Concomitant]
  27. KLONOPIN [Concomitant]
  28. CYMBALTA [Concomitant]
  29. ARICEPT [Concomitant]
  30. ADDERALL 10 [Concomitant]
  31. ASPIRIN [Concomitant]
  32. MULTIVITAMIN ^LAPPE^ [Concomitant]
  33. PERCOCET [Concomitant]
  34. CELEBREX [Concomitant]
  35. SOMA [Concomitant]
  36. CORTISONE ACETATE [Concomitant]
  37. DEPO-MEDROL [Concomitant]
  38. VOLTAREN                           /00372303/ [Concomitant]
  39. BEXTRA [Concomitant]
     Dosage: UNK
  40. TERAZOSIN HCL [Concomitant]
     Dosage: UNK
  41. DIAZEPAM [Concomitant]
  42. CALCIUM [Concomitant]
  43. PROMETRIUM [Concomitant]
  44. BENADRYL ^ACHE^ [Concomitant]
  45. VANCOMYCIN [Concomitant]
  46. PRILOSEC [Concomitant]
  47. MUCINEX [Concomitant]
  48. SEROQUEL [Concomitant]
  49. DIFLUCAN [Concomitant]
  50. ACTIVASE [Concomitant]
  51. ZOVIRAX [Concomitant]
  52. DESYREL [Concomitant]
  53. ASTELIN [Concomitant]
  54. SOLU-MEDROL [Concomitant]
  55. ATROPINE SULFATE [Concomitant]
  56. NASONEX [Concomitant]
  57. ESTROGEN NOS [Concomitant]
  58. DARVOCET-N 100 [Concomitant]
  59. SINUTAB ^ACHE^ [Concomitant]
  60. SELENIUM [Concomitant]
  61. ASCORBIC ACID [Concomitant]
  62. NITROGLYCERIN [Concomitant]
  63. GLUCOSAMINE [Concomitant]
  64. EFFEXOR [Concomitant]
  65. VITAMIN B6 [Concomitant]
  66. VITAMIN E [Concomitant]
  67. ST. JOHN'S WORT [Concomitant]
  68. PREMPRO [Concomitant]
  69. CLARITIN [Concomitant]
  70. FLOVENT [Concomitant]
  71. SEREVENT [Concomitant]
  72. FLONASE [Concomitant]

REACTIONS (90)
  - ABSCESS [None]
  - ANHEDONIA [None]
  - ANTIMICROBIAL SUSCEPTIBILITY TEST RESISTANT [None]
  - ANXIETY [None]
  - ARTHROSCOPIC SURGERY [None]
  - ATELECTASIS [None]
  - BACTERIAL DISEASE CARRIER [None]
  - BLOOD CALCIUM DECREASED [None]
  - BLOOD UREA NITROGEN/CREATININE RATIO INCREASED [None]
  - BREAST CALCIFICATIONS [None]
  - BRONCHOPLEURAL FISTULA [None]
  - CARDIOMEGALY [None]
  - CEREBROVASCULAR DISORDER [None]
  - CERVICAL SPINAL STENOSIS [None]
  - CHEST PAIN [None]
  - CHEST TUBE INSERTION [None]
  - CHONDROMALACIA [None]
  - COLONIC POLYP [None]
  - COUGH [None]
  - CYST [None]
  - DEBRIDEMENT [None]
  - DEPRESSION [None]
  - DIARRHOEA [None]
  - DIVERTICULUM INTESTINAL [None]
  - DYSPNOEA EXERTIONAL [None]
  - EMPHYSEMA [None]
  - EMPYEMA [None]
  - EMPYEMA DRAINAGE [None]
  - ENDODONTIC PROCEDURE [None]
  - EYE DISCHARGE [None]
  - FAECAL INCONTINENCE [None]
  - FALL [None]
  - FIBULA FRACTURE [None]
  - FOOT DEFORMITY [None]
  - FOOT FRACTURE [None]
  - GAIT DISTURBANCE [None]
  - GASTRITIS [None]
  - HYDROPNEUMOTHORAX [None]
  - INJURY [None]
  - INJURY CORNEAL [None]
  - INSOMNIA [None]
  - LIP AND/OR ORAL CAVITY CANCER [None]
  - LIP DISCOLOURATION [None]
  - LUNG INFECTION [None]
  - LUNG NEOPLASM MALIGNANT [None]
  - LUNG OPERATION [None]
  - LYMPHADENOPATHY MEDIASTINAL [None]
  - MAMMOPLASTY [None]
  - MASTICATION DISORDER [None]
  - MENOPAUSE [None]
  - METASTASES TO LYMPH NODES [None]
  - MUSCLE FLAP OPERATION [None]
  - MUSCULOSKELETAL CHEST PAIN [None]
  - NAUSEA [None]
  - NEUROPATHY PERIPHERAL [None]
  - OEDEMA PERIPHERAL [None]
  - OSTEOARTHRITIS [None]
  - OSTEONECROSIS OF JAW [None]
  - OSTEOPENIA [None]
  - OSTEOPOROSIS [None]
  - OSTEORADIONECROSIS [None]
  - PAIN [None]
  - PAIN IN EXTREMITY [None]
  - PLEURAL FIBROSIS [None]
  - PNEUMOTHORAX [None]
  - PULMONARY AIR LEAKAGE [None]
  - PULMONARY FIBROSIS [None]
  - RECTAL POLYP [None]
  - RENAL FAILURE ACUTE [None]
  - RETCHING [None]
  - RHINITIS [None]
  - RIB FRACTURE [None]
  - ROTATOR CUFF REPAIR [None]
  - ROTATOR CUFF SYNDROME [None]
  - SINUS BRADYCARDIA [None]
  - SINUS OPERATION [None]
  - SINUSITIS [None]
  - SKIN LACERATION [None]
  - SOMNOLENCE [None]
  - SPINAL OSTEOARTHRITIS [None]
  - TENDON RUPTURE [None]
  - THORACOTOMY [None]
  - TIBIA FRACTURE [None]
  - TOOTH DISORDER [None]
  - TOOTH FRACTURE [None]
  - TOOTHACHE [None]
  - UPPER-AIRWAY COUGH SYNDROME [None]
  - URINARY INCONTINENCE [None]
  - WHEEZING [None]
  - WOUND INFECTION STAPHYLOCOCCAL [None]
